FAERS Safety Report 9803121 (Version 1)
Quarter: 2014Q1

REPORT INFORMATION
  Report Type: Spontaneous
  Country: US (occurrence: None)
  Receive Date: 20140107
  Receipt Date: 20140107
  Transmission Date: 20141002
  Serious: No
  Sender: FDA-Public Use
  Company Number: None

PATIENT
  Age: 63 Year
  Sex: Female
  Weight: 83.92 kg

DRUGS (2)
  1. GABAPENTIN [Suspect]
     Indication: NEURALGIA
     Dosage: 1 OR 2 PILLS  EVERY 8 HOURS  TAKEN BY MOUTH
     Route: 048
     Dates: start: 20131101, end: 20140106
  2. GABAPENTIN [Suspect]
     Indication: INTERVERTEBRAL DISC PROTRUSION
     Dosage: 1 OR 2 PILLS  EVERY 8 HOURS  TAKEN BY MOUTH
     Route: 048
     Dates: start: 20131101, end: 20140106

REACTIONS (3)
  - Drug ineffective [None]
  - Product substitution issue [None]
  - Product quality issue [None]
